FAERS Safety Report 14373910 (Version 3)
Quarter: 2018Q1

REPORT INFORMATION
  Report Type: Report from Study
  Country: None (occurrence: GB)
  Receive Date: 20180111
  Receipt Date: 20180122
  Transmission Date: 20180509
  Serious: Yes (Hospitalization)
  Sender: FDA-Public Use
  Company Number: GB-ABBVIE-18P-167-2215444-00

PATIENT
  Age: 15 Year
  Sex: Female

DRUGS (31)
  1. CIPROFLOXACIN. [Concomitant]
     Active Substance: CIPROFLOXACIN
     Route: 040
     Dates: start: 20170726, end: 20170810
  2. TRIMOVATE [Concomitant]
     Active Substance: CLOBETASONE BUTYRATE\NYSTATIN\OXYTETRACYCLINE CALCIUM
     Indication: RASH
     Route: 061
     Dates: start: 20170729
  3. OMEPRAZOLE. [Concomitant]
     Active Substance: OMEPRAZOLE
     Indication: CROHN^S DISEASE
     Route: 048
     Dates: start: 20170828
  4. FRESUBIN [Concomitant]
     Active Substance: AMINO ACIDS\DEXTROSE\ELECTROLYTES NOS\SOYBEAN OIL\VITAMINS
     Indication: VASCULITIS
  5. CIPROFLOXACIN. [Concomitant]
     Active Substance: CIPROFLOXACIN
     Route: 048
     Dates: start: 20171031
  6. MOVICOL [Concomitant]
     Active Substance: POLYETHYLENE GLYCOL 3350\POTASSIUM CHLORIDE\SODIUM BICARBONATE\SODIUM CHLORIDE
     Indication: CROHN^S DISEASE
     Route: 048
     Dates: start: 20161109
  7. BETAMETHASONE. [Concomitant]
     Active Substance: BETAMETHASONE
     Indication: VASCULITIS
     Dosage: MOUTHWASH
     Dates: start: 20171028
  8. PREDNISOLONE. [Concomitant]
     Active Substance: PREDNISOLONE
     Indication: CROHN^S DISEASE
     Route: 048
     Dates: start: 20171026
  9. KETOCONAZOLE. [Concomitant]
     Active Substance: KETOCONAZOLE
     Indication: FUNGAL INFECTION
     Dosage: SHAMPOO
     Route: 061
     Dates: start: 20170731
  10. LOTRIDERM [Concomitant]
     Active Substance: BETAMETHASONE DIPROPIONATE\CLOTRIMAZOLE
     Indication: VASCULITIS
     Route: 061
     Dates: start: 20171028
  11. CIPROFLOXACIN. [Concomitant]
     Active Substance: CIPROFLOXACIN
     Indication: CROHN^S DISEASE
     Route: 048
     Dates: start: 20161109, end: 20170107
  12. CIPROFLOXACIN. [Concomitant]
     Active Substance: CIPROFLOXACIN
     Route: 040
     Dates: start: 20170827, end: 20170907
  13. FERROUS SULFATE. [Concomitant]
     Active Substance: FERROUS SULFATE
     Indication: CROHN^S DISEASE
     Route: 048
     Dates: start: 20121003
  14. DERMOL 500 [Concomitant]
     Indication: VASCULITIS
     Dosage: LOTION
     Route: 061
     Dates: start: 2016
  15. DOXYCYCLINE. [Concomitant]
     Active Substance: DOXYCYCLINE
     Indication: VASCULITIS
     Dosage: MOUTHWASH
     Dates: start: 20171027
  16. AZATHIOPRINE. [Suspect]
     Active Substance: AZATHIOPRINE
     Indication: CROHN^S DISEASE
     Route: 048
     Dates: start: 20090401, end: 20161211
  17. CIPROFLOXACIN. [Concomitant]
     Active Substance: CIPROFLOXACIN
     Route: 040
     Dates: start: 20170107, end: 20170112
  18. SYNALAR [Concomitant]
     Active Substance: FLUOCINOLONE ACETONIDE
     Indication: LOCALISED INFECTION
     Dosage: GEL FOR SCALP
     Route: 061
     Dates: start: 20170731
  19. HUMIRA [Suspect]
     Active Substance: ADALIMUMAB
     Indication: CROHN^S DISEASE
     Route: 058
     Dates: start: 20170112, end: 20170727
  20. CHLORHEXIDINE 0.2% [Concomitant]
     Indication: VASCULITIS
     Dosage: MOUTHWASH
     Dates: start: 20171030
  21. EUMOVATE OINTMENT [Concomitant]
     Indication: VASCULITIS
     Route: 061
     Dates: start: 20171130
  22. CIPROFLOXACIN. [Concomitant]
     Active Substance: CIPROFLOXACIN
     Route: 048
     Dates: start: 20170112, end: 20170518
  23. HUMIRA [Suspect]
     Active Substance: ADALIMUMAB
     Route: 058
     Dates: start: 201710
  24. AZATHIOPRINE. [Suspect]
     Active Substance: AZATHIOPRINE
     Route: 048
     Dates: start: 20161212, end: 201708
  25. CIPROFLOXACIN. [Concomitant]
     Active Substance: CIPROFLOXACIN
     Route: 048
     Dates: start: 20170810, end: 20170827
  26. CIPROFLOXACIN. [Concomitant]
     Active Substance: CIPROFLOXACIN
     Route: 040
     Dates: start: 20171027, end: 20171030
  27. CIPROFLOXACIN. [Concomitant]
     Active Substance: CIPROFLOXACIN
     Route: 048
     Dates: start: 20170907, end: 20171027
  28. NYSTATIN. [Concomitant]
     Active Substance: NYSTATIN
     Indication: VASCULITIS
     Route: 061
     Dates: start: 20171027
  29. ADCAL D3 [Concomitant]
     Active Substance: CALCIUM CARBONATE\CHOLECALCIFEROL
     Indication: VITAMIN D DEFICIENCY
     Route: 048
     Dates: start: 20171028
  30. FRESUBIN [Concomitant]
     Active Substance: AMINO ACIDS\DEXTROSE\ELECTROLYTES NOS\SOYBEAN OIL\VITAMINS
     Indication: HYPOPHAGIA
     Route: 048
     Dates: start: 20171028
  31. PROTOPIC [Concomitant]
     Active Substance: TACROLIMUS
     Indication: VASCULITIS
     Dosage: ALTERNATE DAYS
     Route: 061
     Dates: start: 20171130

REACTIONS (1)
  - Stoma site infection [Recovered/Resolved]

NARRATIVE: CASE EVENT DATE: 20171221
